FAERS Safety Report 8498508-5 (Version None)
Quarter: 2012Q3

REPORT INFORMATION
  Report Type: 
  Country: None (occurrence: None)
  Receive Date: 20120709
  Receipt Date: 20120625
  Transmission Date: 20120928
  Serious: No
  Sender: FDA-Public Use
  Company Number: US-AMGEN-USASP2011022761

PATIENT
  Age: 51 Year
  Sex: Female
  Weight: 50.794 kg

DRUGS (1)
  1. ENBREL [Suspect]
     Indication: RHEUMATOID ARTHRITIS
     Dosage: 50 MG, QWK
     Route: 058
     Dates: start: 20110201

REACTIONS (6)
  - UPPER RESPIRATORY TRACT INFECTION [None]
  - COUGH [None]
  - TINNITUS [None]
  - RHINORRHOEA [None]
  - RESPIRATORY TRACT CONGESTION [None]
  - FEELING ABNORMAL [None]
